FAERS Safety Report 17478851 (Version 1)
Quarter: 2020Q1

REPORT INFORMATION
  Report Type: Report from Study
  Country: CA (occurrence: CA)
  Receive Date: 20200228
  Receipt Date: 20200228
  Transmission Date: 20200409
  Serious: Yes (Hospitalization)
  Sender: FDA-Public Use
  Company Number: CA-JNJFOC-20191216211

PATIENT
  Age: 56 Year
  Sex: Female

DRUGS (1)
  1. STELARA [Suspect]
     Active Substance: USTEKINUMAB
     Indication: CROHN^S DISEASE
     Route: 058

REACTIONS (5)
  - Intestinal operation [Unknown]
  - Drug ineffective [Unknown]
  - Post procedural infection [Unknown]
  - Infection [Not Recovered/Not Resolved]
  - Incision site abscess [Unknown]

NARRATIVE: CASE EVENT DATE: 2019
